FAERS Safety Report 5825729-X (Version None)
Quarter: 2008Q3

REPORT INFORMATION
  Report Type: 
  Country: None (occurrence: None)
  Receive Date: 20080723
  Receipt Date: 20080708
  Transmission Date: 20090109
  Serious: Yes (Other)
  Sender: FDA-Public Use
  Company Number: 2008S1011993

PATIENT
  Age: 30 Year
  Sex: Female

DRUGS (4)
  1. TACROLIMUS [Suspect]
     Indication: IMMUNOSUPPRESSION
     Dosage: 10 MG; DAILY, 10 MG; DAILY
  2. PREDNISONE [Suspect]
     Indication: IMMUNOSUPPRESSION
     Dosage: 15 MG; DAILY, 15 MG; DAILY
  3. AZATHIOPRINE [Suspect]
     Indication: IMMUNOSUPPRESSION
     Dosage: 50 MG; DAILY, 50 MG; DAILY
  4. MYCOPHENOLATE MOFETIL [Suspect]
     Indication: IMMUNOSUPPRESSION

REACTIONS (6)
  - CYTOMEGALOVIRUS ANTIGEN POSITIVE [None]
  - GINGIVAL ULCERATION [None]
  - HERPES SIMPLEX SEROLOGY POSITIVE [None]
  - LEUKOPENIA [None]
  - ORAL CANDIDIASIS [None]
  - WEIGHT DECREASED [None]
